FAERS Safety Report 11463828 (Version 1)
Quarter: 2015Q3

REPORT INFORMATION
  Report Type: Spontaneous
  Country: US (occurrence: US)
  Receive Date: 20150831
  Receipt Date: 20150831
  Transmission Date: 20151125
  Serious: No
  Sender: FDA-Public Use
  Company Number: US-ELI_LILLY_AND_COMPANY-US201105000993

PATIENT
  Age: 24 Year
  Sex: Female

DRUGS (1)
  1. CYMBALTA [Suspect]
     Active Substance: DULOXETINE HYDROCHLORIDE
     Indication: ANXIETY
     Dosage: 30 MG, QD

REACTIONS (14)
  - Burning sensation [Unknown]
  - Mydriasis [Unknown]
  - Hypersomnia [Unknown]
  - Stomatitis [Unknown]
  - Headache [Unknown]
  - Dizziness [Unknown]
  - Insomnia [Unknown]
  - Nausea [Unknown]
  - Feeling hot [Not Recovered/Not Resolved]
  - Bruxism [Unknown]
  - Decreased appetite [Unknown]
  - Tension [Unknown]
  - Intentional product misuse [Unknown]
  - Head discomfort [Unknown]

NARRATIVE: CASE EVENT DATE: 20110502
